FAERS Safety Report 6919198-6 (Version None)
Quarter: 2010Q3

REPORT INFORMATION
  Report Type: 
  Country: None (occurrence: None)
  Receive Date: 20100811
  Receipt Date: 20100802
  Transmission Date: 20110219
  Serious: Yes (Other)
  Sender: FDA-Public Use
  Company Number: AT-ROCHE-718893

PATIENT

DRUGS (2)
  1. PEGINTERFERON ALFA-2A [Suspect]
     Route: 065
  2. RIBAVIRIN [Suspect]
     Dosage: DOSE BODY WEIGHT ADJUSTED
     Route: 065

REACTIONS (9)
  - ANAEMIA [None]
  - CONVULSION [None]
  - HEPATITIS C [None]
  - INFECTION [None]
  - LABORATORY TEST ABNORMAL [None]
  - LEUKOPENIA [None]
  - LYMPHOMA [None]
  - MAJOR DEPRESSION [None]
  - STAPHYLOCOCCAL SEPSIS [None]
